FAERS Safety Report 9096606 (Version 1)
Quarter: 2013Q1

REPORT INFORMATION
  Report Type: Spontaneous
  Country: IT (occurrence: None)
  Receive Date: 20130125
  Receipt Date: 20130125
  Transmission Date: 20140127
  Serious: Yes (Other)
  Sender: FDA-Public Use
  Company Number: 2013-0300

PATIENT
  Age: 4 Year
  Sex: Female
  Weight: 14 kg

DRUGS (2)
  1. DYSPORT (BOTULINUM TOXIN TYPE A) (BOTULINUM TOXIN TYPE A) [Suspect]
     Indication: CONGENITAL MULTIPLEX ARTHROGRYPOSIS
     Dosage: 200 UNITS (200  UNITS, 1 IN 1 CYCLE(S)), INTRAMUSCULAR
     Route: 030
     Dates: start: 20121211, end: 20121211
  2. DYSPORT (BOTULINUM TOXIN TYPE A) (BOTULINUM TOXIN TYPE A) [Suspect]
     Indication: OFF LABEL USE
     Dosage: 200 UNITS (200  UNITS, 1 IN 1 CYCLE(S)), INTRAMUSCULAR
     Route: 030
     Dates: start: 20121211, end: 20121211

REACTIONS (2)
  - VIIth nerve paralysis [None]
  - Eyelid oedema [None]
